FAERS Safety Report 19444033 (Version 2)
Quarter: 2021Q3

REPORT INFORMATION
  Report Type: Report from Study
  Country: NL (occurrence: NL)
  Receive Date: 20210621
  Receipt Date: 20210701
  Transmission Date: 20211014
  Serious: Yes (Death, Hospitalization)
  Sender: FDA-Public Use
  Company Number: NL-OTSUKA-2021_020984

PATIENT
  Age: 71 Year
  Sex: Male

DRUGS (6)
  1. DECITABINE. [Suspect]
     Active Substance: DECITABINE
     Indication: ACUTE MYELOID LEUKAEMIA
     Dosage: 20 MG/M2
     Route: 065
     Dates: start: 202101, end: 202101
  2. VENETOCLAX. [Suspect]
     Active Substance: VENETOCLAX
     Indication: ACUTE MYELOID LEUKAEMIA
     Dosage: UNK (300 MG,1 D)
     Route: 048
     Dates: start: 2021, end: 2021
  3. VENETOCLAX. [Suspect]
     Active Substance: VENETOCLAX
     Dosage: (200 MG,1 D)
     Route: 048
     Dates: start: 2021, end: 2021
  4. VENETOCLAX. [Suspect]
     Active Substance: VENETOCLAX
     Dosage: (100 MG,1 D)
     Route: 048
     Dates: start: 20210119, end: 20210120
  5. VENETOCLAX. [Suspect]
     Active Substance: VENETOCLAX
     Dosage: (400 MG,1 D)
     Route: 048
     Dates: start: 2021, end: 2021
  6. AZACITIDINE. [Suspect]
     Active Substance: AZACITIDINE
     Indication: ACUTE MYELOID LEUKAEMIA
     Dosage: (75 MG/M2)
     Route: 065
     Dates: start: 20210119, end: 20210126

REACTIONS (6)
  - Off label use [Unknown]
  - Acute myeloid leukaemia [Fatal]
  - Oesophageal candidiasis [Recovered/Resolved]
  - Neutropenia [Not Recovered/Not Resolved]
  - Therapeutic product effect incomplete [Fatal]
  - Infection [Fatal]

NARRATIVE: CASE EVENT DATE: 2021
